FAERS Safety Report 7245212-7 (Version None)
Quarter: 2011Q1

REPORT INFORMATION
  Report Type: 
  Country: None (occurrence: None)
  Receive Date: 20110126
  Receipt Date: 20110119
  Transmission Date: 20110831
  Serious: Yes (Death, Hospitalization, Other)
  Sender: FDA-Public Use
  Company Number: PHHY2011US03548

PATIENT
  Sex: Female

DRUGS (15)
  1. LASIX [Concomitant]
     Route: 042
  2. ENABLEX [Concomitant]
     Dosage: 7.5 MG DAILY
  3. RESTORIL [Concomitant]
  4. HYDRALAZINE HCL [Concomitant]
  5. CALCIUM WITH VITAMIN D [Concomitant]
  6. TASIGNA [Suspect]
     Dosage: 150 MG, BID
     Route: 048
  7. PROCRIT [Concomitant]
  8. CADUET [Concomitant]
  9. HUMALOG [Concomitant]
  10. TASIGNA [Suspect]
     Indication: CHRONIC MYELOID LEUKAEMIA
     Dosage: 200 MG, BID
     Route: 048
     Dates: start: 20080605
  11. PLAVIX [Concomitant]
  12. MULTI-VITAMINS [Concomitant]
  13. TYLENOL-500 [Concomitant]
  14. IMDUR [Concomitant]
  15. NEXIUM [Concomitant]

REACTIONS (21)
  - INTERVERTEBRAL DISC DEGENERATION [None]
  - PLEURAL EFFUSION [None]
  - HYPOXIA [None]
  - BLOOD PRESSURE INCREASED [None]
  - WEIGHT INCREASED [None]
  - PARAESTHESIA [None]
  - ARRHYTHMIA [None]
  - CONSTIPATION [None]
  - BONE PAIN [None]
  - DYSPNOEA [None]
  - HYPERCHOLESTEROLAEMIA [None]
  - COUGH [None]
  - BRAIN NATRIURETIC PEPTIDE INCREASED [None]
  - OEDEMA PERIPHERAL [None]
  - MUCOSAL DRYNESS [None]
  - BACK PAIN [None]
  - SINUS TACHYCARDIA [None]
  - CARDIAC FAILURE CONGESTIVE [None]
  - TACHYPNOEA [None]
  - RALES [None]
  - OXYGEN SATURATION DECREASED [None]
